FAERS Safety Report 8897925 (Version 1)
Quarter: 2012Q4

REPORT INFORMATION
  Report Type: 
  Country: US (occurrence: US)
  Receive Date: 20121108
  Receipt Date: 20121108
  Transmission Date: 20130627
  Serious: No
  Sender: FDA-Public Use
  Company Number: US-AMGEN-USASP2012032939

PATIENT
  Sex: Female

DRUGS (4)
  1. ENBREL [Suspect]
     Indication: PRODUCT USED FOR UNKNOWN INDICATION
     Dosage: 50 mg, 2 times/wk
     Route: 058
  2. PREMARIN [Concomitant]
     Dosage: 0.45 mg, UNK
  3. AMLODIPINE [Concomitant]
     Dosage: 5 mg, UNK
  4. PROZAC [Concomitant]
     Dosage: 20 mg, UNK

REACTIONS (1)
  - Injection site pain [Unknown]
